FAERS Safety Report 25272688 (Version 1)
Quarter: 2025Q2

REPORT INFORMATION
  Report Type: Spontaneous
  Country: US (occurrence: US)
  Receive Date: 20250506
  Receipt Date: 20250506
  Transmission Date: 20250716
  Serious: Yes (Hospitalization, Other)
  Sender: AUROBINDO
  Company Number: US-AUROBINDO-AUR-APL-2025-022914

PATIENT
  Age: 18 Year
  Sex: Male

DRUGS (2)
  1. IBUPROFEN [Suspect]
     Active Substance: IBUPROFEN
     Indication: Product used for unknown indication
     Route: 048
  2. IRON [Suspect]
     Active Substance: IRON
     Indication: Product used for unknown indication
     Route: 048

REACTIONS (3)
  - Acute hepatic failure [Unknown]
  - Gastrointestinal disorder [Unknown]
  - Intentional overdose [Unknown]
